FAERS Safety Report 7899109 (Version 6)
Quarter: 2012Q4

REPORT INFORMATION
  Report Type: 
  Country: FR (occurrence: FR)
  Receive Date: 20110414
  Receipt Date: 20121025
  Transmission Date: 20130627
  Serious: Yes (Hospitalization, Other)
  Sender: FDA-Public Use
  Company Number: FR-ROCHE-770571

PATIENT
  Sex: Female

DRUGS (15)
  1. BONVIVA [Suspect]
     Indication: PRODUCT USED FOR UNKNOWN INDICATION
     Route: 065
     Dates: start: 20070927, end: 20090311
  2. PREDNISONE [Suspect]
     Indication: SJOGREN^S SYNDROME
     Route: 065
     Dates: start: 200109, end: 200912
  3. PREDNISONE [Suspect]
     Indication: RHEUMATOID ARTHRITIS
  4. ESCITALOPRAM [Concomitant]
  5. FOLIC ACID [Concomitant]
  6. SPIRONOLACTONE [Concomitant]
  7. MORPHINE SULPHATE SR [Concomitant]
  8. METHOTREXATE [Concomitant]
     Indication: RHEUMATOID ARTHRITIS
  9. FENOFIBRATE [Concomitant]
  10. ZOLPIDEM [Concomitant]
  11. VITAMIN D [Concomitant]
     Indication: OSTEOPOROSIS
  12. CHONDROITIN SULFATE SODIUM [Concomitant]
  13. KETOPROFEN [Concomitant]
  14. CALCIUM [Concomitant]
     Indication: OSTEOPOROSIS
     Route: 065
  15. RISEDRONATE SODIUM [Concomitant]
     Route: 065
     Dates: start: 200406, end: 20040730

REACTIONS (3)
  - Periodontal disease [Not Recovered/Not Resolved]
  - Dental alveolar anomaly [Not Recovered/Not Resolved]
  - Post-traumatic stress disorder [Not Recovered/Not Resolved]
